FAERS Safety Report 18311884 (Version 1)
Quarter: 2020Q3

REPORT INFORMATION
  Report Type: Spontaneous
  Country: US (occurrence: US)
  Receive Date: 20200924
  Receipt Date: 20200924
  Transmission Date: 20201103
  Serious: Yes (Death)
  Sender: FDA-Public Use
  Company Number: None

PATIENT
  Age: 70 Year
  Sex: Male
  Weight: 89.81 kg

DRUGS (17)
  1. REMDESIVIR 200 MG [Suspect]
     Active Substance: REMDESIVIR
     Indication: COVID-19
     Dosage: FREQUENCY: DAY 1
     Route: 042
     Dates: start: 20200828, end: 20200828
  2. LOVENOX [Concomitant]
     Active Substance: ENOXAPARIN SODIUM
  3. LEVEMIR [Concomitant]
     Active Substance: INSULIN DETEMIR
  4. COVID?19 CONVALESCENT PLASMA. [Concomitant]
     Active Substance: COVID-19 CONVALESCENT PLASMA
  5. PANTOPRAZOLE [Concomitant]
     Active Substance: PANTOPRAZOLE
  6. ASPIRIN. [Concomitant]
     Active Substance: ASPIRIN
  7. SIMVASTATIN. [Concomitant]
     Active Substance: SIMVASTATIN
  8. AMIODARONE [Concomitant]
     Active Substance: AMIODARONE
  9. ALBUTEROL INHALER [Concomitant]
     Active Substance: ALBUTEROL
  10. NOVOLOG [Concomitant]
     Active Substance: INSULIN ASPART
  11. CARVEDILOL. [Concomitant]
     Active Substance: CARVEDILOL
  12. GABAPENTIN. [Concomitant]
     Active Substance: GABAPENTIN
  13. PLAVIX [Concomitant]
     Active Substance: CLOPIDOGREL BISULFATE
  14. DECADRON [Concomitant]
     Active Substance: DEXAMETHASONE
     Dosage: ?          OTHER FREQUENCY:QDAY ;?
     Route: 042
  15. REMDESIVIR 100MG [Suspect]
     Active Substance: REMDESIVIR
     Indication: COVID-19
     Dosage: FREQUENY: DAY 2?5
     Route: 042
     Dates: start: 20200829, end: 20200901
  16. BETA?BLOCKERS [Concomitant]
  17. LEVEMIR [Concomitant]
     Active Substance: INSULIN DETEMIR

REACTIONS (14)
  - Oxygen saturation decreased [None]
  - Lethargy [None]
  - Agitation [None]
  - Hypoxia [None]
  - Dyspnoea [None]
  - Condition aggravated [None]
  - Blood pressure decreased [None]
  - Lung infiltration [None]
  - Atrial fibrillation [None]
  - Heart rate decreased [None]
  - Confusional state [None]
  - Renal disorder [None]
  - Blood creatinine increased [None]
  - CHA2DS2-VASc-score [None]

NARRATIVE: CASE EVENT DATE: 20200923
